FAERS Safety Report 8368942-2 (Version None)
Quarter: 2012Q2

REPORT INFORMATION
  Report Type: 
  Country: None (occurrence: None)
  Receive Date: 20120516
  Receipt Date: 20120502
  Transmission Date: 20120825
  Serious: Yes (Other)
  Sender: FDA-Public Use
  Company Number: 2012MA005985

PATIENT
  Age: 23 Year
  Sex: Male

DRUGS (7)
  1. GEMCITABINE HYDROCHLORIDE [Suspect]
     Indication: EWING'S SARCOMA METASTATIC
     Dosage: 1400 MG;X3;IV
     Route: 042
  2. OXYNORM [Concomitant]
  3. LYRICA [Concomitant]
  4. ESOMEPRAZOLE MAGNESIUM [Concomitant]
  5. OXYCONTIN [Concomitant]
  6. AMITRIPTYLINE HCL [Concomitant]
  7. DOMPERIDONE [Concomitant]

REACTIONS (2)
  - DIZZINESS [None]
  - BALANCE DISORDER [None]
